FAERS Safety Report 6864297-0 (Version None)
Quarter: 2010Q3

REPORT INFORMATION
  Report Type: 
  Country: None (occurrence: None)
  Receive Date: 20100721
  Receipt Date: 20080320
  Transmission Date: 20110219
  Serious: No
  Sender: FDA-Public Use
  Company Number: US-PFIZER INC-2008026656

PATIENT
  Sex: Female
  Weight: 68.181 kg

DRUGS (6)
  1. CHANTIX [Suspect]
     Indication: SMOKING CESSATION THERAPY
     Dates: start: 20080301
  2. PROTONIX [Concomitant]
  3. MONTELUKAST SODIUM [Concomitant]
  4. XANAX [Concomitant]
  5. MOMETASONE FUROATE [Concomitant]
  6. PULMICORT [Concomitant]

REACTIONS (4)
  - ABDOMINAL PAIN UPPER [None]
  - BLOOD PRESSURE DECREASED [None]
  - NAUSEA [None]
  - VOMITING [None]
